FAERS Safety Report 25423652 (Version 1)
Quarter: 2025Q2

REPORT INFORMATION
  Report Type: Spontaneous
  Country: US (occurrence: US)
  Receive Date: 20250611
  Receipt Date: 20250611
  Transmission Date: 20250717
  Serious: Yes (Other)
  Sender: TEVA
  Company Number: US-TEVA-VS-3340590

PATIENT
  Sex: Female

DRUGS (1)
  1. METFORMIN [Suspect]
     Active Substance: METFORMIN HYDROCHLORIDE
     Indication: Blood glucose increased
     Route: 065
     Dates: start: 202407, end: 202408

REACTIONS (3)
  - Autoimmune disorder [Not Recovered/Not Resolved]
  - Anaemia [Unknown]
  - Transfusion reaction [Recovered/Resolved]

NARRATIVE: CASE EVENT DATE: 20240101
